FAERS Safety Report 7364886-3 (Version None)
Quarter: 2011Q1

REPORT INFORMATION
  Report Type: 
  Country: None (occurrence: None)
  Receive Date: 20110321
  Receipt Date: 20110315
  Transmission Date: 20110831
  Serious: Yes (Death, Hospitalization)
  Sender: FDA-Public Use
  Company Number: DE-ASTRAZENECA-2009SE32356

PATIENT
  Age: 789 Month
  Sex: Male
  Weight: 115 kg

DRUGS (5)
  1. FORTECORTIN [Concomitant]
  2. ATACAND HCT [Concomitant]
     Dosage: 16/22.5 MG, 1 TABLET DAILY
     Route: 048
  3. NEXIUM [Concomitant]
     Route: 048
     Dates: start: 20090201, end: 20090801
  4. SEROQUEL [Suspect]
     Indication: PSYCHOTIC DISORDER
     Route: 048
     Dates: start: 20090201, end: 20090801
  5. ZYLORIC [Concomitant]
     Indication: HYPERURICAEMIA
     Route: 048

REACTIONS (5)
  - WEIGHT DECREASED [None]
  - NEUROPATHY PERIPHERAL [None]
  - TUMOUR ASSOCIATED FEVER [None]
  - PLASMACYTOMA [None]
  - ANAEMIA [None]
